FAERS Safety Report 9304219 (Version 1)
Quarter: 2013Q2

REPORT INFORMATION
  Report Type: Report from Study
  Country: JP (occurrence: JP)
  Receive Date: 20130522
  Receipt Date: 20130522
  Transmission Date: 20140414
  Serious: Yes (Hospitalization)
  Sender: FDA-Public Use
  Company Number: JP-ACTELION-A-CH2013-83234

PATIENT
  Age: 52 Year
  Sex: Female
  Weight: 50.8 kg

DRUGS (12)
  1. TRACLEER [Suspect]
     Indication: PULMONARY HYPERTENSION
     Dosage: 62.5 MG, TID
     Route: 048
     Dates: start: 20071031, end: 20071107
  2. TRACLEER [Suspect]
     Dosage: 62.5 MG, QD
     Route: 048
     Dates: start: 20071017, end: 20071022
  3. TRACLEER [Suspect]
     Dosage: 62.5 MG, BID
     Route: 048
     Dates: start: 20071023, end: 20071030
  4. TRACLEER [Suspect]
     Dosage: 62.5 MG, BID
     Route: 048
     Dates: start: 20071108
  5. EPOPROSTENOL SODIUM [Concomitant]
  6. WARFARIN POTASSIUM [Concomitant]
  7. FUROSEMIDE [Concomitant]
  8. SPIRONOLACTONE [Concomitant]
  9. FAMOTIDINE [Concomitant]
  10. DIGOXIN [Concomitant]
  11. VANCOMYCIN HYDROCHLORIDE [Concomitant]
  12. OXYGEN [Concomitant]

REACTIONS (5)
  - Right ventricular failure [Recovering/Resolving]
  - Concomitant disease aggravated [Recovering/Resolving]
  - Hepatic function abnormal [Recovering/Resolving]
  - Aspartate aminotransferase increased [Recovering/Resolving]
  - Alanine aminotransferase increased [Recovering/Resolving]
